FAERS Safety Report 4415865-7 (Version None)
Quarter: 2004Q3

REPORT INFORMATION
  Report Type: 
  Country: None (occurrence: None)
  Receive Date: 20040805
  Receipt Date: 20040727
  Transmission Date: 20050211
  Serious: Yes (Hospitalization, Other)
  Sender: FDA-Public Use
  Company Number: 200417473GDDC

PATIENT
  Age: 70 Year
  Sex: Male
  Weight: 75 kg

DRUGS (11)
  1. DOCETAXEL [Suspect]
     Indication: GASTRIC CANCER
     Route: 042
     Dates: start: 20011207, end: 20020109
  2. PEMETREXED [Suspect]
     Indication: GASTRIC CANCER
     Route: 042
     Dates: start: 20011214, end: 20020109
  3. FENTANYL [Concomitant]
     Dates: start: 20011206
  4. FOLIC ACID [Concomitant]
  5. HALOPERIDOL [Concomitant]
     Indication: NAUSEA
     Dosage: DOSE: UNK
     Dates: start: 20011101
  6. PARACETAMOL [Concomitant]
     Indication: ABDOMINAL PAIN
     Dosage: DOSE: UNK
     Dates: start: 20011101
  7. CO-DANTHRAMER [Concomitant]
     Dosage: DOSE: UNK
     Dates: start: 20011101
  8. DEXAMETHASONE [Concomitant]
     Indication: ABDOMINAL PAIN
     Dosage: DOSE: UNK
     Dates: start: 20011101
  9. COMFEEL [Concomitant]
     Indication: DECUBITUS ULCER
     Dosage: DOSE: UNK
     Dates: start: 20011231
  10. BENZYDAMINE HYDROCHLORIDE [Concomitant]
     Dosage: DOSE: UNK
     Dates: start: 20011224, end: 20020126
  11. CORSODYL [Concomitant]
     Dosage: DOSE: UNK
     Dates: start: 20011224, end: 20020126

REACTIONS (8)
  - ABDOMINAL PAIN [None]
  - ANAEMIA [None]
  - ASTHENIA [None]
  - CONDITION AGGRAVATED [None]
  - CONSTIPATION [None]
  - DISEASE PROGRESSION [None]
  - INTERVERTEBRAL DISC PROTRUSION [None]
  - URINARY HESITATION [None]
